FAERS Safety Report 7949546-X (Version None)
Quarter: 2011Q4

REPORT INFORMATION
  Report Type: 
  Country: None (occurrence: None)
  Receive Date: 20111130
  Receipt Date: 20111118
  Transmission Date: 20120403
  Serious: Yes (Other)
  Sender: FDA-Public Use
  Company Number: GB-ROCHE-1014497

PATIENT
  Sex: Female

DRUGS (3)
  1. AZULFIDINE [Concomitant]
  2. METHOTREXATE [Concomitant]
  3. MABTHERA [Suspect]
     Indication: RHEUMATOID ARTHRITIS
     Dates: start: 20100105, end: 20100416

REACTIONS (1)
  - LIVER FUNCTION TEST ABNORMAL [None]
